FAERS Safety Report 18502185 (Version 4)
Quarter: 2021Q1

REPORT INFORMATION
  Report Type: Spontaneous
  Country: HK (occurrence: HK)
  Receive Date: 20201113
  Receipt Date: 20210115
  Transmission Date: 20210419
  Serious: Yes (Death, Other)
  Sender: FDA-Public Use
  Company Number: HK-ALXN-A202016508

PATIENT
  Age: 3 Year
  Sex: Female

DRUGS (51)
  1. VANCOMYCIN [Concomitant]
     Active Substance: VANCOMYCIN
     Dosage: 220 MG, Q12H
     Route: 065
  2. CEFTRIAXONE. [Concomitant]
     Active Substance: CEFTRIAXONE
     Indication: ANTIBIOTIC THERAPY
     Dosage: 0.85 G, QD
     Route: 042
     Dates: start: 2020
  3. LEVOFLOXACIN. [Concomitant]
     Active Substance: LEVOFLOXACIN
     Indication: ANTIBIOTIC THERAPY
     Dosage: 150 MG, QD
     Route: 042
     Dates: start: 2020
  4. CYCLOSPORIN A [Concomitant]
     Active Substance: CYCLOSPORINE
     Indication: STEROID THERAPY
  5. URSODEOXYCHOLIC ACID [Concomitant]
     Active Substance: URSODIOL
     Indication: VENOOCCLUSIVE DISEASE
     Dosage: 170 MG, TID
     Route: 048
     Dates: start: 2020
  6. DEFIBROTIDE [Concomitant]
     Active Substance: DEFIBROTIDE (BOVINE)
     Indication: VENOOCCLUSIVE DISEASE
     Dosage: 100 MG, Q12H
     Route: 042
     Dates: start: 2020
  7. NOVOSEVEN [Concomitant]
     Active Substance: COAGULATION FACTOR VIIA RECOMBINANT HUMAN
     Indication: PRODUCT USED FOR UNKNOWN INDICATION
     Dosage: 2 MG, SINGLE
     Route: 042
     Dates: start: 2020
  8. SOLIRIS [Suspect]
     Active Substance: ECULIZUMAB
     Indication: OFF LABEL USE
     Dosage: 600 MG, QW FOR 5 DOSES
     Route: 065
     Dates: start: 20200220, end: 20200320
  9. MICAFUNGIN. [Concomitant]
     Active Substance: MICAFUNGIN SODIUM
     Indication: ANTIFUNGAL TREATMENT
     Dosage: 50 MG, Q24H
     Route: 042
     Dates: start: 2020
  10. MYCOPHENOLATE MOFETIL. [Concomitant]
     Active Substance: MYCOPHENOLATE MOFETIL
     Indication: STEROID THERAPY
  11. ACETYLCYSTEINE. [Concomitant]
     Active Substance: ACETYLCYSTEINE
     Indication: VENOOCCLUSIVE DISEASE
     Dosage: 1200 MG, Q6H
     Route: 042
     Dates: start: 2020
  12. TRANEXAMIC ACID. [Concomitant]
     Active Substance: TRANEXAMIC ACID
     Dosage: 250 MG, Q8H
     Route: 042
  13. FRUSEMIDE                          /00032601/ [Concomitant]
     Active Substance: FUROSEMIDE
     Indication: PRODUCT USED FOR UNKNOWN INDICATION
     Dosage: 8 MG, SINGLE
     Route: 042
     Dates: start: 2020
  14. METHYLPREDNISOLONE. [Concomitant]
     Active Substance: METHYLPREDNISOLONE
     Indication: STEROID THERAPY
     Dosage: 15 MG, Q12H
     Route: 042
  15. METHYLPREDNISOLONE. [Concomitant]
     Active Substance: METHYLPREDNISOLONE
     Dosage: 11 MG, Q12H
     Route: 042
  16. ALBUMIN [Concomitant]
     Active Substance: ALBUMIN HUMAN
     Indication: PRODUCT USED FOR UNKNOWN INDICATION
     Dosage: 17 G, SINGLE
     Route: 042
     Dates: start: 2020
  17. TRANEXAMIC ACID. [Concomitant]
     Active Substance: TRANEXAMIC ACID
     Indication: PRODUCT USED FOR UNKNOWN INDICATION
     Dosage: 170 MG, Q8H
     Route: 042
     Dates: start: 2020
  18. VANCOMYCIN [Concomitant]
     Active Substance: VANCOMYCIN
     Dosage: 220 MG, Q24H
     Route: 065
  19. VANCOMYCIN [Concomitant]
     Active Substance: VANCOMYCIN
     Dosage: 200 MG, Q12H
     Route: 042
  20. MEROPENEM. [Concomitant]
     Active Substance: MEROPENEM
     Indication: ANTIBIOTIC THERAPY
     Dosage: 340 MG, Q8H
     Route: 042
     Dates: start: 2020
  21. METRONIDAZOLE. [Concomitant]
     Active Substance: METRONIDAZOLE
     Indication: ANTIBIOTIC THERAPY
     Dosage: 130 MG, Q8H
     Route: 042
     Dates: start: 2020
  22. ANIDULAFUNGIN [Concomitant]
     Active Substance: ANIDULAFUNGIN
     Indication: ANTIFUNGAL TREATMENT
     Dosage: 25 MG, QD
     Route: 042
     Dates: start: 2020
  23. TACROLIMUS. [Concomitant]
     Active Substance: TACROLIMUS
     Indication: STEROID THERAPY
  24. GRANISETRON [Concomitant]
     Active Substance: GRANISETRON
     Indication: PRODUCT USED FOR UNKNOWN INDICATION
     Dosage: 0.7 MG, Q12H
     Route: 042
     Dates: start: 2020
  25. CHLORPHENIRAMINE                   /00072501/ [Concomitant]
     Active Substance: CHLORPHENIRAMINE
     Indication: PRODUCT USED FOR UNKNOWN INDICATION
     Dosage: 1.7 MG, Q6H PRN
     Route: 042
     Dates: start: 2020
  26. ALBUMIN [Concomitant]
     Active Substance: ALBUMIN HUMAN
     Dosage: 12.5 G, SINGLE
     Route: 042
  27. ALBUMIN [Concomitant]
     Active Substance: ALBUMIN HUMAN
     Dosage: 17 G, SINGLE
     Route: 042
  28. FILGRASTIM [Concomitant]
     Active Substance: FILGRASTIM
     Indication: PRODUCT USED FOR UNKNOWN INDICATION
     Dosage: 80 ?G, Q24H
     Route: 042
     Dates: start: 2020
  29. THIAMINE. [Concomitant]
     Active Substance: THIAMINE
     Indication: PRODUCT USED FOR UNKNOWN INDICATION
     Dosage: 100 MG, Q8H
     Route: 042
     Dates: start: 2020
  30. COTRIMOXAZOLE [Concomitant]
     Active Substance: SULFAMETHOXAZOLE\TRIMETHOPRIM
     Indication: ANTIBIOTIC THERAPY
     Dosage: 120 MG, Q12H (FRI,SAT,SUN)
     Route: 042
     Dates: start: 2020
  31. BUDESONIDE. [Concomitant]
     Active Substance: BUDESONIDE
     Indication: IMMUNOSUPPRESSANT DRUG THERAPY
     Dosage: 3 MG, QD
     Route: 048
     Dates: start: 2020
  32. SOLIRIS [Suspect]
     Active Substance: ECULIZUMAB
     Indication: THROMBOTIC MICROANGIOPATHY
  33. VANCOMYCIN [Concomitant]
     Active Substance: VANCOMYCIN
     Dosage: 170 MG, Q12H
     Route: 042
  34. GANCICLOVIR. [Concomitant]
     Active Substance: GANCICLOVIR
     Indication: ANTIVIRAL TREATMENT
     Dosage: 85 MG, Q12H
     Route: 042
     Dates: start: 2020
  35. AMPHOTERICIN B, LIPOSOME [Concomitant]
     Active Substance: AMPHOTERICIN B
     Indication: ANTIFUNGAL TREATMENT
     Dosage: 50 MG, Q24H
     Route: 042
     Dates: start: 2020
  36. METHYLPREDNISOLONE. [Concomitant]
     Active Substance: METHYLPREDNISOLONE
     Indication: IMMUNOSUPPRESSANT DRUG THERAPY
     Dosage: 8 MG, Q6H
     Route: 042
     Dates: start: 2020
  37. BUDESONIDE. [Concomitant]
     Active Substance: BUDESONIDE
     Indication: STEROID THERAPY
  38. ESOMEPRAZOLE. [Concomitant]
     Active Substance: ESOMEPRAZOLE MAGNESIUM
     Dosage: 14 MG, Q24H
     Route: 042
  39. SOLIRIS [Suspect]
     Active Substance: ECULIZUMAB
     Indication: STEM CELL TRANSPLANT
  40. VANCOMYCIN [Concomitant]
     Active Substance: VANCOMYCIN
     Indication: ANTIBIOTIC THERAPY
     Dosage: 200 MG, Q24H
     Route: 042
     Dates: start: 2020
  41. CEFEPIME [Concomitant]
     Active Substance: CEFEPIME HYDROCHLORIDE
     Indication: ANTIBIOTIC THERAPY
     Dosage: 0.87 G, Q12H
     Route: 042
     Dates: start: 2020
  42. MYCOPHENOLATE MOFETIL. [Concomitant]
     Active Substance: MYCOPHENOLATE MOFETIL
     Indication: IMMUNOSUPPRESSANT DRUG THERAPY
     Dosage: 400 MG, Q12H
     Route: 042
     Dates: start: 2020
  43. CYCLOSPORIN A [Concomitant]
     Active Substance: CYCLOSPORINE
     Indication: IMMUNOSUPPRESSANT DRUG THERAPY
     Dosage: 20 MG, Q12H
     Route: 042
     Dates: start: 2020
  44. PHYTOMENADIONE [Concomitant]
     Active Substance: PHYTONADIONE
     Indication: PRODUCT USED FOR UNKNOWN INDICATION
     Dosage: 5 MG, QD
     Route: 042
     Dates: start: 2020
  45. MORPHINE [Concomitant]
     Active Substance: MORPHINE
     Indication: PRODUCT USED FOR UNKNOWN INDICATION
     Dosage: 0.8 MG, Q1H PRN
     Route: 042
     Dates: start: 2020
  46. TRAMADOL. [Concomitant]
     Active Substance: TRAMADOL
     Indication: PRODUCT USED FOR UNKNOWN INDICATION
     Dosage: 15 MG, Q4H PRN
     Route: 048
     Dates: start: 2020
  47. METHYLPREDNISOLONE. [Concomitant]
     Active Substance: METHYLPREDNISOLONE
     Dosage: 13 MG, Q12H
     Route: 065
  48. TACROLIMUS. [Concomitant]
     Active Substance: TACROLIMUS
     Indication: IMMUNOSUPPRESSANT DRUG THERAPY
     Dosage: 0.5 MG, Q12H
     Route: 042
     Dates: start: 2020
  49. VITAMIN E                          /00110501/ [Concomitant]
     Active Substance: TOCOPHEROL
     Indication: PRODUCT USED FOR UNKNOWN INDICATION
     Dosage: 20 IU, QD
     Route: 048
     Dates: start: 2020
  50. ESOMEPRAZOLE. [Concomitant]
     Active Substance: ESOMEPRAZOLE MAGNESIUM
     Indication: PRODUCT USED FOR UNKNOWN INDICATION
     Dosage: 20 MG, Q12H
     Route: 042
     Dates: start: 2020
  51. MIDAZOLAM. [Concomitant]
     Active Substance: MIDAZOLAM
     Indication: PRODUCT USED FOR UNKNOWN INDICATION
     Dosage: 0.85 MG, Q1H PRN
     Route: 042
     Dates: start: 2020

REACTIONS (2)
  - Death [Fatal]
  - Off label use [Recovered/Resolved]

NARRATIVE: CASE EVENT DATE: 20200220
